FAERS Safety Report 7283553-8 (Version None)
Quarter: 2011Q1

REPORT INFORMATION
  Report Type: 
  Country: None (occurrence: None)
  Receive Date: 20110209
  Receipt Date: 20110204
  Transmission Date: 20110831
  Serious: Yes (Hospitalization)
  Sender: FDA-Public Use
  Company Number: A0776009A

PATIENT
  Age: 70 Year
  Sex: Male
  Weight: 98.6 kg

DRUGS (5)
  1. ATENOLOL [Concomitant]
     Indication: HYPERTENSION
     Dates: start: 20070101
  2. NITROGLYCERIN [Concomitant]
     Dates: start: 20070101
  3. METOPROLOL [Concomitant]
     Dates: start: 20060101
  4. HYDROCHLOROTHIAZIDE [Concomitant]
     Dates: start: 20060101
  5. AVANDIA [Suspect]
     Dosage: 8MG PER DAY
     Route: 048
     Dates: start: 20060601, end: 20070601

REACTIONS (4)
  - CHEST PAIN [None]
  - MOBILITY DECREASED [None]
  - MYOCARDIAL INFARCTION [None]
  - HEART INJURY [None]
